FAERS Safety Report 16110803 (Version 1)
Quarter: 2019Q1

REPORT INFORMATION
  Report Type: Spontaneous
  Country: FR (occurrence: FR)
  Receive Date: 20190325
  Receipt Date: 20190325
  Transmission Date: 20190418
  Serious: Yes (Hospitalization, Other)
  Sender: FDA-Public Use
  Company Number: FR-AUROBINDO-AUR-APL-2019-016646

PATIENT

DRUGS (2)
  1. VOLTARENE (DICLOFENAC SODIUM) [Suspect]
     Active Substance: DICLOFENAC SODIUM
     Indication: ARTHRALGIA
     Dosage: 3 DOSAGE FORM
     Route: 048
     Dates: start: 20190308, end: 20190309
  2. ESOMEPRAZOLE. [Suspect]
     Active Substance: ESOMEPRAZOLE MAGNESIUM
     Indication: PROPHYLAXIS AGAINST GASTROINTESTINAL ULCER
     Dosage: UNK
     Route: 048
     Dates: start: 20190308, end: 20190309

REACTIONS (2)
  - Diarrhoea haemorrhagic [Recovered/Resolved]
  - Mucous stools [Recovered/Resolved]

NARRATIVE: CASE EVENT DATE: 20190309
